FAERS Safety Report 6286413-4 (Version None)
Quarter: 2009Q3

REPORT INFORMATION
  Report Type: 
  Country: None (occurrence: None)
  Receive Date: 20090724
  Receipt Date: 20090710
  Transmission Date: 20100115
  Serious: No
  Sender: FDA-Public Use
  Company Number: POMP-1000624

PATIENT
  Age: 68 Year
  Sex: Male
  Weight: 73.1 kg

DRUGS (7)
  1. MYOZYME [Suspect]
     Indication: GLYCOGEN STORAGE DISEASE TYPE II
     Dosage: 1450 MG, Q2W, INTRAVENOUS
     Route: 042
     Dates: start: 20090305
  2. WARFARIN SODIUM [Suspect]
     Indication: PERICARDIAL EFFUSION
     Dates: start: 20070101
  3. LEVOTHYROXINE SODIUM [Concomitant]
  4. BOSENTAN (BOSENTAN) [Concomitant]
  5. TRAMACET (PARACETAMOL, TRAMADOL) [Concomitant]
  6. MORPHINE SULFATE [Concomitant]
  7. AMLODIPINE [Concomitant]

REACTIONS (2)
  - DRUG INTERACTION [None]
  - INTERNATIONAL NORMALISED RATIO FLUCTUATION [None]
